FAERS Safety Report 20705293 (Version 1)
Quarter: 2022Q2

REPORT INFORMATION
  Report Type: Spontaneous
  Country: US (occurrence: US)
  Receive Date: 20220413
  Receipt Date: 20220413
  Transmission Date: 20220721
  Serious: No
  Sender: FDA-Public Use
  Company Number: US-PFIZER INC-202101834874

PATIENT
  Age: 56 Year
  Sex: Female

DRUGS (9)
  1. INLYTA [Suspect]
     Active Substance: AXITINIB
     Dosage: 3 MG, 2X/DAY
     Route: 048
     Dates: start: 20211020
  2. KEYTRUDA [Concomitant]
     Active Substance: PEMBROLIZUMAB
     Dosage: UNK
  3. XANAX [Concomitant]
     Active Substance: ALPRAZOLAM
     Dosage: UNK
  4. PRAMIPEXOLE DIHYDROCHLORIDE [Concomitant]
     Active Substance: PRAMIPEXOLE DIHYDROCHLORIDE
     Dosage: UNK
  5. LEXAPRO [Concomitant]
     Active Substance: ESCITALOPRAM OXALATE
     Dosage: UNK
  6. CYANOCOBALAMIN [Concomitant]
     Active Substance: CYANOCOBALAMIN
     Dosage: UNK
  7. SUMATRIPTAN [Concomitant]
     Active Substance: SUMATRIPTAN
     Dosage: UNK
  8. EPIPEN [Concomitant]
     Active Substance: EPINEPHRINE
     Dosage: UNK
  9. LANSOPRAZOLE [Concomitant]
     Active Substance: LANSOPRAZOLE
     Dosage: UNK

REACTIONS (4)
  - Pain [Unknown]
  - Headache [Unknown]
  - Bone pain [Unknown]
  - Fatigue [Unknown]
